FAERS Safety Report 10661688 (Version 2)
Quarter: 2015Q2

REPORT INFORMATION
  Report Type: Spontaneous
  Country: IT (occurrence: None)
  Receive Date: 20141216
  Receipt Date: 20150414
  Transmission Date: 20150821
  Serious: Yes (Other)
  Sender: FDA-Public Use
  Company Number: KAD201412-001609

PATIENT
  Age: 66 Year
  Sex: Male
  Weight: 108 kg

DRUGS (4)
  1. SOFOSBUVIR [Suspect]
     Active Substance: SOFOSBUVIR
     Indication: CHRONIC HEPATITIS C
     Dosage: 600 MG/DAY, ORAL
     Route: 048
     Dates: start: 20140919, end: 20141113
  2. RIBAVIRIN. [Suspect]
     Active Substance: RIBAVIRIN
     Indication: CHRONIC HEPATITIS C
     Dosage: 400 MG/DAY, ORAL
     Route: 048
     Dates: start: 20140919, end: 20141113
  3. ADVAGRAF (TACROLIMUS) [Concomitant]
  4. COUMADIN [Concomitant]
     Active Substance: WARFARIN SODIUM

REACTIONS (8)
  - Hyperammonaemia [None]
  - Aspartate aminotransferase increased [None]
  - Hepatic encephalopathy [None]
  - Blood bilirubin increased [None]
  - Transaminases increased [None]
  - Bilirubin conjugated increased [None]
  - General physical health deterioration [None]
  - Alanine aminotransferase increased [None]

NARRATIVE: CASE EVENT DATE: 20141113
